FAERS Safety Report 7899029-0 (Version None)
Quarter: 2011Q4

REPORT INFORMATION
  Report Type: 
  Country: None (occurrence: None)
  Receive Date: 20111107
  Receipt Date: 20111027
  Transmission Date: 20120403
  Serious: Yes (Hospitalization)
  Sender: FDA-Public Use
  Company Number: DE-ASTRAZENECA-2011SE58111

PATIENT
  Age: 27479 Day
  Sex: Male
  Weight: 74 kg

DRUGS (12)
  1. MARCUMAR [Suspect]
  2. AMLODIPINE [Concomitant]
     Indication: CORONARY ARTERY DISEASE
     Route: 048
     Dates: start: 20070101
  3. BISOPROLOL [Concomitant]
     Indication: CORONARY ARTERY DISEASE
     Route: 048
     Dates: start: 20050101
  4. BISOPROLOL [Concomitant]
     Indication: HYPERTENSION
     Route: 048
     Dates: start: 20050101
  5. AMLODIPINE [Concomitant]
     Indication: HYPERTENSION
     Route: 048
     Dates: start: 20070101
  6. ACTRAPID [Concomitant]
     Indication: DIABETES MELLITUS
     Route: 058
     Dates: start: 19980101
  7. BRILIQUE [Suspect]
     Indication: THROMBOSIS PROPHYLAXIS
     Route: 048
     Dates: start: 20110701
  8. EZETIMIBE [Concomitant]
     Indication: CORONARY ARTERY DISEASE
     Dosage: 10/80; 1 DF DAILY
     Route: 048
     Dates: start: 20100101
  9. ASPIRIN [Concomitant]
     Indication: CORONARY ARTERY DISEASE
     Route: 048
     Dates: start: 19980101
  10. RAMIPRIL [Concomitant]
     Route: 048
     Dates: start: 20070101
  11. PROTAPHANE [Concomitant]
     Indication: DIABETES MELLITUS
     Route: 058
     Dates: start: 19980101
  12. BRILIQUE [Suspect]
     Indication: STENT PLACEMENT
     Route: 048
     Dates: start: 20110701

REACTIONS (6)
  - ANAEMIA [None]
  - PROTHROMBIN TIME PROLONGED [None]
  - MYALGIA [None]
  - COAGULATION TEST ABNORMAL [None]
  - HAEMATOMA [None]
  - ACTIVATED PARTIAL THROMBOPLASTIN TIME PROLONGED [None]
